FAERS Safety Report 8957878 (Version 1)
Quarter: 2012Q4

REPORT INFORMATION
  Report Type: 
  Country: FR (occurrence: FR)
  Receive Date: 20121211
  Receipt Date: 20121211
  Transmission Date: 20130627
  Serious: Yes (Other)
  Sender: FDA-Public Use
  Company Number: FR-WATSON-2012-20894

PATIENT
  Sex: Male

DRUGS (2)
  1. RAPAFLO (WATSON LABORATORIES) [Suspect]
     Indication: PROSTATIC ADENOMA
     Dosage: 8 mg qd
     Route: 048
  2. OMEXEL [Concomitant]
     Indication: PRODUCT USED FOR UNKNOWN INDICATION
     Dosage: UNK

REACTIONS (4)
  - Orthostatic hypotension [Unknown]
  - Dizziness [Unknown]
  - Malaise [Unknown]
  - Fall [Unknown]
